FAERS Safety Report 10330058 (Version 1)
Quarter: 2014Q3

REPORT INFORMATION
  Report Type: Spontaneous
  Country: US (occurrence: US)
  Receive Date: 20140721
  Receipt Date: 20140721
  Transmission Date: 20150326
  Serious: Yes (Other)
  Sender: FDA-Public Use
  Company Number: US-CELGENEUS-163-21880-14072113

PATIENT
  Age: 84 Year
  Sex: Female
  Weight: 92.62 kg

DRUGS (1)
  1. REVLIMID [Suspect]
     Active Substance: LENALIDOMIDE
     Indication: MYELODYSPLASTIC SYNDROME
     Dosage: 2.5 MILLIGRAM
     Route: 048
     Dates: start: 20120825

REACTIONS (3)
  - Asthma [Unknown]
  - Contusion [Unknown]
  - Cellulitis [Unknown]

NARRATIVE: CASE EVENT DATE: 201406
